FAERS Safety Report 9166856 (Version 2)
Quarter: 2013Q2

REPORT INFORMATION
  Report Type: Spontaneous
  Country: SE (occurrence: SE)
  Receive Date: 20130318
  Receipt Date: 20130509
  Transmission Date: 20140414
  Serious: Yes (Other)
  Sender: FDA-Public Use
  Company Number: SE-AMGEN-SWESP2013005789

PATIENT
  Age: 68 Year
  Sex: Female
  Weight: 71 kg

DRUGS (1)
  1. VECTIBIX [Suspect]
     Indication: NEOPLASM MALIGNANT
     Dosage: 22 MUL, UNK
     Route: 042
     Dates: start: 20110426, end: 20120313

REACTIONS (1)
  - Hypomagnesaemia [Not Recovered/Not Resolved]
